FAERS Safety Report 21871154 (Version 3)
Quarter: 2023Q1

REPORT INFORMATION
  Report Type: Spontaneous
  Country: US (occurrence: US)
  Receive Date: 20230117
  Receipt Date: 20230205
  Transmission Date: 20230417
  Serious: No
  Sender: FDA-Public Use
  Company Number: US-ELI_LILLY_AND_COMPANY-US202212003757

PATIENT
  Age: 48 Year
  Sex: Female
  Weight: 145.6 kg

DRUGS (11)
  1. ADCIRCA [Suspect]
     Active Substance: TADALAFIL
     Indication: Product used for unknown indication
     Dosage: UNK UNK, UNKNOWN
     Route: 065
  2. REMODULIN [Suspect]
     Active Substance: TREPROSTINIL
     Indication: Pulmonary arterial hypertension
     Dosage: 15NG/KG/MIN, CONTINUOUS
     Route: 042
     Dates: start: 20221129
  3. REMODULIN [Suspect]
     Active Substance: TREPROSTINIL
     Dosage: 2NG/KG/MIN, CONTINUOUS
     Route: 042
  4. REMODULIN [Suspect]
     Active Substance: TREPROSTINIL
     Dosage: 19 NG/KG/MIN, CONTINUOUS
     Route: 042
  5. REMODULIN [Suspect]
     Active Substance: TREPROSTINIL
     Dosage: 21 NG/KG/MIN, CONTINUOUS
     Route: 042
  6. REMODULIN [Suspect]
     Active Substance: TREPROSTINIL
     Dosage: 22 NG/KG/MIN, CONTINUOUS
     Route: 042
     Dates: start: 20221218
  7. REMODULIN [Suspect]
     Active Substance: TREPROSTINIL
     Dosage: 23 NG/KG/MIN, CONTINUOUS
     Route: 042
  8. REMODULIN [Suspect]
     Active Substance: TREPROSTINIL
     Dosage: UNK UNK, UNKNOWN
     Route: 042
     Dates: start: 20221220
  9. REMODULIN [Suspect]
     Active Substance: TREPROSTINIL
     Dosage: 26 NG/KG/MIN, CONTINIOUS
     Route: 042
  10. REMODULIN [Suspect]
     Active Substance: TREPROSTINIL
     Dosage: 30 NG, UNKNOWN
     Dates: start: 20230117
  11. AMBRISENTAN [Concomitant]
     Active Substance: AMBRISENTAN
     Indication: Product used for unknown indication
     Dosage: UNK UNK, UNKNOWN

REACTIONS (17)
  - Pain in jaw [Recovered/Resolved]
  - Nausea [Unknown]
  - Pain in extremity [Recovered/Resolved]
  - Headache [Recovering/Resolving]
  - Tachycardia [Not Recovered/Not Resolved]
  - Nausea [Unknown]
  - Vomiting [Recovering/Resolving]
  - Dizziness [Recovering/Resolving]
  - Fatigue [Unknown]
  - Dyspnoea [Unknown]
  - Headache [Unknown]
  - Oedema peripheral [Unknown]
  - Flushing [Unknown]
  - Headache [Not Recovered/Not Resolved]
  - Nausea [Unknown]
  - Vomiting [Unknown]
  - Flushing [Not Recovered/Not Resolved]

NARRATIVE: CASE EVENT DATE: 20221201
